FAERS Safety Report 6860635-3 (Version None)
Quarter: 2010Q2

REPORT INFORMATION
  Report Type: 
  Country: None (occurrence: None)
  Receive Date: 20100528
  Receipt Date: 20100216
  Transmission Date: 20101027
  Serious: Yes (Hospitalization)
  Sender: FDA-Public Use
  Company Number: CIP08001625

PATIENT
  Age: 60 Year
  Sex: Female
  Weight: 84.4 kg

DRUGS (35)
  1. ACTONEL [Suspect]
     Indication: OSTEOPENIA
     Dosage: 30 MG ONCE WEEKLY, ORAL
     Route: 048
     Dates: start: 20001115, end: 20071001
  2. ACTONEL [Suspect]
     Indication: OSTEOPOROSIS
     Dosage: 30 MG ONCE WEEKLY, ORAL
     Route: 048
     Dates: start: 20001115, end: 20071001
  3. ACTONEL [Suspect]
     Indication: OSTEOPOROSIS PROPHYLAXIS
     Dosage: 30 MG ONCE WEEKLY, ORAL
     Route: 048
     Dates: start: 20001115, end: 20071001
  4. FOSAMAX [Suspect]
     Indication: OSTEOPENIA
     Dosage: 40 MG ONCE WEEKLY, ORAL
     Route: 048
     Dates: start: 19991208, end: 20001115
  5. FOSAMAX [Suspect]
     Indication: OSTEOPOROSIS
     Dosage: 40 MG ONCE WEEKLY, ORAL
     Route: 048
     Dates: start: 19991208, end: 20001115
  6. FOSAMAX [Suspect]
     Indication: OSTEOPOROSIS PROPHYLAXIS
     Dosage: 40 MG ONCE WEEKLY, ORAL
     Route: 048
     Dates: start: 19991208, end: 20001115
  7. ESTROPIPATE [Concomitant]
  8. TRIMETHOPRIM [Concomitant]
  9. BENZONATATE [Concomitant]
  10. ALPRAZOLAM [Concomitant]
  11. METFORMIN HCL [Concomitant]
  12. DICYCLOMINE /00068601/ (DICYCLOVERINE) [Concomitant]
  13. VIVELLE-DOT [Concomitant]
  14. PREMARIN [Concomitant]
  15. WELLBUTRIN [Concomitant]
  16. BEXTRA /01400702/ (PARECOXIB SODIUM) [Concomitant]
  17. LIPITOR [Concomitant]
  18. CLARITIN /00413701/ (GLICLAZIDE) [Concomitant]
  19. ALBUTEROL SULFATE /00139501/ (SALBUTAMOL) [Concomitant]
  20. FLOVENT [Concomitant]
  21. COZAAR [Concomitant]
  22. GLUCOPHAGE XR (METFORMIN HYDROCHLORIDE) [Concomitant]
  23. ATENOLOL [Concomitant]
  24. FLUOXETINE [Suspect]
  25. SYNTHROID [Concomitant]
  26. PREMARIN [Concomitant]
  27. PREVACID [Concomitant]
  28. ASPIRIN [Concomitant]
  29. HYDROCHLOROTHIAZIDE [Concomitant]
  30. DARVOCET [Concomitant]
  31. MECLIZIN (MECLOZINE HYDROCHLORIDE) [Concomitant]
  32. NYSTATIN [Concomitant]
  33. CYMBALTA [Concomitant]
  34. ZOLOFT [Concomitant]
  35. AMBIEN [Concomitant]

REACTIONS (18)
  - BONE FRAGMENTATION [None]
  - DENTAL CARIES [None]
  - DEVICE BREAKAGE [None]
  - GINGIVAL BLEEDING [None]
  - GINGIVAL DISORDER [None]
  - GINGIVAL SWELLING [None]
  - GINGIVITIS [None]
  - IMPAIRED HEALING [None]
  - JAW DISORDER [None]
  - MOUTH ULCERATION [None]
  - ORAL MUCOSAL ERYTHEMA [None]
  - OSTEONECROSIS [None]
  - PAIN IN JAW [None]
  - PROCEDURAL PAIN [None]
  - TOOTH FRACTURE [None]
  - TOOTH INFECTION [None]
  - TOOTHACHE [None]
  - TREATMENT FAILURE [None]
